FAERS Safety Report 5274858-0 (Version None)
Quarter: 2007Q1

REPORT INFORMATION
  Report Type: 
  Country: None (occurrence: None)
  Receive Date: 20061208
  Receipt Date: 20060517
  Transmission Date: 20070707
  Serious: Yes (Hospitalization)
  Sender: FDA-Public Use
  Company Number: 2006UW07594

PATIENT
  Age: 61 Year
  Sex: Female
  Weight: 107 kg

DRUGS (1)
  1. CRESTOR [Suspect]
     Indication: HYPERCHOLESTEROLAEMIA
     Dosage: 10 MG HS PO
     Route: 048
     Dates: start: 20060201, end: 20060301

REACTIONS (1)
  - RHABDOMYOLYSIS [None]
